FAERS Safety Report 6121175-2 (Version None)
Quarter: 2009Q1

REPORT INFORMATION
  Report Type: 
  Country: None (occurrence: None)
  Receive Date: 20090312
  Receipt Date: 20090312
  Transmission Date: 20090719
  Serious: Yes (Life-Threatening)
  Sender: FDA-Public Use
  Company Number: None

PATIENT
  Age: 52 Year
  Sex: Male
  Weight: 88.4514 kg

DRUGS (2)
  1. PROVIGIL [Suspect]
     Indication: NARCOLEPSY
     Dosage: 200 TWICE A DAY PO
     Route: 048
     Dates: start: 20090114, end: 20090308
  2. PROVIGIL [Suspect]
     Indication: SLEEP DISORDER
     Dosage: 200 TWICE A DAY PO
     Route: 048
     Dates: start: 20090114, end: 20090308

REACTIONS (1)
  - SUICIDAL IDEATION [None]
